FAERS Safety Report 8276640-9 (Version None)
Quarter: 2012Q2

REPORT INFORMATION
  Report Type: 
  Country: None (occurrence: None)
  Receive Date: 20120412
  Receipt Date: 20120330
  Transmission Date: 20120825
  Serious: Yes (Hospitalization)
  Sender: FDA-Public Use
  Company Number: PHHO2012JP002456

PATIENT
  Sex: Male
  Weight: 59 kg

DRUGS (15)
  1. ALDACTONE [Concomitant]
     Indication: POLYURIA
     Dosage: 25 MG, UNK
     Route: 048
     Dates: start: 20090422
  2. ALLORINE [Concomitant]
     Indication: GOUT
     Dosage: 25 MG, UNK
     Route: 048
     Dates: start: 20090422
  3. CARVEDILOL [Concomitant]
     Indication: CARDIAC FAILURE CHRONIC
     Dosage: 1.25 MG, UNK
     Route: 048
  4. LASIX [Concomitant]
     Dosage: 20 MG, UNK
     Route: 048
  5. ASPIRIN [Concomitant]
     Indication: THROMBOSIS PROPHYLAXIS
     Dosage: 50 MG, UNK
     Route: 048
     Dates: start: 20090422
  6. JANUVIA [Concomitant]
     Indication: DIABETES MELLITUS
     Dosage: 100 MG, UNK
     Route: 048
     Dates: start: 20090422
  7. DIART [Concomitant]
     Indication: POLYURIA
     Dosage: 120 MG, UNK
     Route: 048
     Dates: start: 20090422
  8. ALISKIREN [Suspect]
     Indication: CARDIAC FAILURE
     Dosage: UNK
     Route: 048
     Dates: end: 20120110
  9. UNASYN [Concomitant]
     Dosage: 750 MG, UNK
     Route: 048
  10. PLAVIX [Concomitant]
     Indication: THROMBOSIS PROPHYLAXIS
     Dosage: 75 MG, UNK
     Route: 048
     Dates: start: 20090422
  11. MAGNESIUM OXIDE [Concomitant]
     Indication: CONSTIPATION PROPHYLAXIS
     Dosage: 990 MG, UNK
     Route: 048
     Dates: start: 20120301
  12. ENALAPRIL MALEATE [Suspect]
     Indication: CARDIAC FAILURE
     Dosage: UNK
     Dates: end: 20120110
  13. LANSOPRAZOLE [Concomitant]
     Indication: PROPHYLAXIS AGAINST GASTROINTESTINAL ULCER
     Dosage: 15 MG, UNK
     Route: 048
     Dates: start: 20090422
  14. GLIMEPIRIDE [Concomitant]
     Indication: DIABETES MELLITUS
     Dosage: 1 MG, UNK
     Route: 048
     Dates: start: 20090422
  15. TORSEMIDE [Concomitant]
     Dosage: 4 MG, UNK
     Route: 048

REACTIONS (14)
  - HYPOTENSION [None]
  - DECREASED APPETITE [None]
  - VENTRICULAR EXTRASYSTOLES [None]
  - PERIPHERAL VASCULAR DISORDER [None]
  - CARDIAC FAILURE [None]
  - ASPARTATE AMINOTRANSFERASE INCREASED [None]
  - BLOOD UREA INCREASED [None]
  - VENTRICULAR TACHYCARDIA [None]
  - BLOOD CREATINE INCREASED [None]
  - BLOOD BILIRUBIN INCREASED [None]
  - HAEMOGLOBIN DECREASED [None]
  - HAEMORRHAGE [None]
  - HAEMATOMA [None]
  - ALANINE AMINOTRANSFERASE INCREASED [None]
